FAERS Safety Report 9748227 (Version 1)
Quarter: 2013Q4

REPORT INFORMATION
  Report Type: Spontaneous
  Country: US (occurrence: None)
  Receive Date: 20131209
  Receipt Date: 20131209
  Transmission Date: 20140711
  Serious: No
  Sender: FDA-Public Use
  Company Number: None

PATIENT
  Age: 44 Year
  Sex: Female

DRUGS (1)
  1. COPAXONE 20 MG TEVA [Suspect]
     Indication: MULTIPLE SCLEROSIS
     Dates: start: 201308

REACTIONS (3)
  - Injection site pain [None]
  - Injection site pain [None]
  - Injection site mass [None]
